FAERS Safety Report 8296155-1 (Version None)
Quarter: 2012Q2

REPORT INFORMATION
  Report Type: 
  Country: None (occurrence: None)
  Receive Date: 20120418
  Receipt Date: 20120413
  Transmission Date: 20120825
  Serious: Yes (Other)
  Sender: FDA-Public Use
  Company Number: JP-GLAXOSMITHKLINE-B0796101A

PATIENT
  Age: 61 Year
  Sex: Female

DRUGS (2)
  1. LAMIVUDINE (EPIVIR HBV) [Suspect]
     Indication: HEPATITIS B
     Route: 048
  2. HEPSERA [Suspect]
     Indication: HEPATITIS B
     Route: 048

REACTIONS (2)
  - MOTOR NEURONE DISEASE [None]
  - AMYOTROPHIC LATERAL SCLEROSIS [None]
